FAERS Safety Report 8999105 (Version 2)
Quarter: 2013Q1

REPORT INFORMATION
  Report Type: Report from Study
  Country: US (occurrence: US)
  Receive Date: 20130103
  Receipt Date: 20130220
  Transmission Date: 20140127
  Serious: No
  Sender: FDA-Public Use
  Company Number: US-VERTEX PHARMACEUTICALS INC.-2013-000038

PATIENT
  Age: 31 None
  Sex: Male
  Weight: 84 kg

DRUGS (5)
  1. VX-950 (TELAPREVIR) [Suspect]
     Indication: HEPATITIS C
     Dosage: 750 MG, TID
     Route: 048
     Dates: start: 20121214
  2. PEGASYS [Suspect]
     Indication: HEPATITIS C
     Dosage: 180 ?G, WEEKLY
     Route: 058
     Dates: start: 20121214
  3. RIBAVIRIN [Suspect]
     Indication: HEPATITIS C
     Dosage: 600 MG, BID
     Route: 048
     Dates: start: 20121214
  4. SUBOXONE [Concomitant]
     Dosage: 2-0.5 MG
  5. OMEPRAZOLE [Concomitant]
     Dosage: 40 MG, UNK

REACTIONS (4)
  - Drug dose omission [Unknown]
  - Hot flush [Unknown]
  - Rash papular [Unknown]
  - Rash pruritic [Not Recovered/Not Resolved]
